FAERS Safety Report 25171704 (Version 1)
Quarter: 2025Q2

REPORT INFORMATION
  Report Type: Report from Study
  Country: US (occurrence: US)
  Receive Date: 20250408
  Receipt Date: 20250408
  Transmission Date: 20250716
  Serious: Yes (Hospitalization, Other)
  Sender: INSMED
  Company Number: US-INSMED, INC.-2025-01216-US

PATIENT
  Age: 88 Year
  Sex: Female

DRUGS (2)
  1. ARIKAYCE [Suspect]
     Active Substance: AMIKACIN
     Indication: Mycobacterium avium complex infection
     Route: 055
     Dates: start: 20231115
  2. ETHAMBUTOL [Concomitant]
     Active Substance: ETHAMBUTOL HYDROCHLORIDE
     Indication: Mycobacterium avium complex infection
     Route: 065
     Dates: start: 2023, end: 20250315

REACTIONS (13)
  - Hospitalisation [Unknown]
  - Bronchopulmonary aspergillosis [Not Recovered/Not Resolved]
  - Pneumonia [Unknown]
  - Deafness [Not Recovered/Not Resolved]
  - Fungal infection [Unknown]
  - Somnolence [Unknown]
  - Hepatic enzyme increased [Unknown]
  - Electrocardiogram abnormal [Unknown]
  - Choking [Unknown]
  - Aphonia [Recovered/Resolved]
  - Productive cough [Unknown]
  - Fatigue [Unknown]
  - Hypoacusis [Unknown]

NARRATIVE: CASE EVENT DATE: 20250301
